FAERS Safety Report 20216545 (Version 1)
Quarter: 2021Q4

REPORT INFORMATION
  Report Type: Spontaneous
  Country: US (occurrence: None)
  Receive Date: 20211221
  Receipt Date: 20211221
  Transmission Date: 20220303
  Serious: Yes (Other)
  Sender: FDA-Public Use
  Company Number: None

PATIENT
  Age: 18 Year
  Sex: Female
  Weight: 60.75 kg

DRUGS (2)
  1. AMINOCAPROIC ACID [Suspect]
     Active Substance: AMINOCAPROIC ACID
     Indication: Product used for unknown indication
     Dosage: OTHER FREQUENCY : Q6H PRN;?
     Route: 048
     Dates: start: 20211214, end: 20211214
  2. Aminocaproic Acid 1000mg [Concomitant]
     Dates: start: 20211214, end: 20211214

REACTIONS (5)
  - Hyperhidrosis [None]
  - Adverse drug reaction [None]
  - Dizziness [None]
  - Dizziness [None]
  - Presyncope [None]

NARRATIVE: CASE EVENT DATE: 20211214
